FAERS Safety Report 13360352 (Version 3)
Quarter: 2018Q2

REPORT INFORMATION
  Report Type: Report from Study
  Country: BR (occurrence: BR)
  Receive Date: 20170322
  Receipt Date: 20180608
  Transmission Date: 20180711
  Serious: Yes (Disabling, Other)
  Sender: FDA-Public Use
  Company Number: BR-SHIRE-BR201706061

PATIENT

DRUGS (10)
  1. OMEPRAZOLE. [Concomitant]
     Active Substance: OMEPRAZOLE
     Indication: PROPHYLAXIS
     Dosage: 20 MG, 1X/DAY:QD
     Route: 065
  2. XARELTO [Concomitant]
     Active Substance: RIVAROXABAN
     Indication: ANTICOAGULANT THERAPY
     Dosage: 15 MG, 1X/DAY:QD
     Route: 065
     Dates: start: 2015
  3. AMITRYL [Concomitant]
     Active Substance: AMITRIPTYLINE HYDROCHLORIDE
     Indication: ILL-DEFINED DISORDER
     Dosage: 25 MG, 1X/DAY:QD
     Route: 065
  4. ELAPRASE [Suspect]
     Active Substance: IDURSULFASE
     Indication: MUCOPOLYSACCHARIDOSIS II
     Dosage: 30 MG (5 VIALS), 1X/WEEK
     Route: 041
     Dates: start: 2002
  5. ATENOLOL. [Concomitant]
     Active Substance: ATENOLOL
     Indication: CARDIAC DISORDER
     Dosage: 25 MG, 1X/DAY:QD
     Route: 065
     Dates: start: 2015
  6. FUROSEMID                          /00032601/ [Concomitant]
     Active Substance: FUROSEMIDE
     Indication: DIURETIC THERAPY
     Dosage: 40 MG, 1X/DAY:QD
     Route: 065
  7. ESCITALOPRAM [Concomitant]
     Active Substance: ESCITALOPRAM OXALATE
     Indication: ANTIDEPRESSANT THERAPY
     Dosage: 20 MG, 1X/DAY:QD (1 TIME IN MORNING)
     Route: 065
     Dates: start: 2017
  8. CLONAZEPAM. [Concomitant]
     Active Substance: CLONAZEPAM
     Indication: SLEEP DISORDER
     Dosage: 2.5 MG, 1X/DAY:QD
     Route: 065
     Dates: start: 2015
  9. ELAPRASE [Suspect]
     Active Substance: IDURSULFASE
     Dosage: 0.5 MG/KG, 5VIALS EVERY THURSDAY
     Route: 050
  10. CARBAMAZEPINA [Concomitant]
     Active Substance: CARBAMAZEPINE
     Indication: CONVULSION PROPHYLAXIS
     Dosage: 200 MG, 1X/DAY:QD
     Route: 065
     Dates: start: 2015

REACTIONS (21)
  - Movement disorder [Not Recovered/Not Resolved]
  - Visual impairment [Unknown]
  - Weight increased [Unknown]
  - Eating disorder [Unknown]
  - Arthralgia [Recovered/Resolved]
  - Nervousness [Unknown]
  - Sensation of foreign body [Unknown]
  - Pain in extremity [Recovered/Resolved]
  - Dysphagia [Unknown]
  - Corneal deposits [Recovered/Resolved]
  - Dyspnoea [Unknown]
  - Anxiety [Unknown]
  - Depression [Not Recovered/Not Resolved]
  - Aggression [Not Recovered/Not Resolved]
  - Inappropriate schedule of drug administration [Recovered/Resolved]
  - Cerebrovascular accident [Unknown]
  - Retinitis pigmentosa [Not Recovered/Not Resolved]
  - Mobility decreased [Unknown]
  - Incorrect dose administered [Not Recovered/Not Resolved]
  - Drug ineffective [Unknown]
  - Drug dose omission [Unknown]

NARRATIVE: CASE EVENT DATE: 2012
